FAERS Safety Report 9855531 (Version 2)
Quarter: 2014Q1

REPORT INFORMATION
  Report Type: Report from Study
  Country: JP (occurrence: JP)
  Receive Date: 20140130
  Receipt Date: 20140221
  Transmission Date: 20141002
  Serious: Yes (Hospitalization)
  Sender: FDA-Public Use
  Company Number: JP-AMGEN-JPNCT2014006427

PATIENT
  Age: 82 Year
  Sex: Female
  Weight: 48 kg

DRUGS (9)
  1. DARBEPOETIN ALFA [Suspect]
     Indication: NEPHROGENIC ANAEMIA
     Dosage: 30 MUG, UNK
     Route: 058
     Dates: start: 20110901, end: 20121011
  2. OLMETEC [Concomitant]
     Indication: RENAL FAILURE ACUTE
     Dosage: UNK
     Route: 048
  3. GAMOFA D [Concomitant]
     Indication: RENAL FAILURE ACUTE
     Dosage: UNK
     Route: 048
  4. LASIX                              /00032601/ [Concomitant]
     Indication: RENAL FAILURE ACUTE
     Dosage: UNK
     Route: 048
  5. MARZULENE-S [Concomitant]
     Indication: RENAL FAILURE ACUTE
     Dosage: UNK
     Route: 048
  6. JUSO [Concomitant]
     Indication: RENAL FAILURE ACUTE
     Dosage: UNK
     Route: 048
  7. RIZE                               /00624801/ [Concomitant]
     Indication: RENAL FAILURE ACUTE
     Dosage: UNK
     Route: 048
  8. BLADDERON [Concomitant]
     Indication: RENAL FAILURE ACUTE
     Dosage: UNK
     Route: 048
  9. PURSENNID                          /00142207/ [Concomitant]
     Dosage: UNK
     Route: 048

REACTIONS (2)
  - Ankle fracture [Unknown]
  - Constipation [Unknown]
